FAERS Safety Report 23250069 (Version 1)
Quarter: 2023Q4

REPORT INFORMATION
  Report Type: Spontaneous
  Country: JP (occurrence: JP)
  Receive Date: 20231201
  Receipt Date: 20231201
  Transmission Date: 20240109
  Serious: Yes (Death, Hospitalization)
  Sender: FDA-Public Use
  Company Number: JP-STRIDES ARCOLAB LIMITED-2023SP017742

PATIENT
  Age: 65 Year
  Sex: Male

DRUGS (11)
  1. PREDNISOLONE [Suspect]
     Active Substance: PREDNISOLONE
     Indication: COVID-19
     Dosage: UNK
     Route: 065
     Dates: start: 2022
  2. MOLNUPIRAVIR [Suspect]
     Active Substance: MOLNUPIRAVIR
     Indication: COVID-19
     Dosage: UNK (ADMINISTERED 4 COURSES BETWEEN DAYS123 AND 133 AND 155 AND 164)
     Route: 065
     Dates: start: 2022
  3. RITUXIMAB [Suspect]
     Active Substance: RITUXIMAB
     Indication: Lymphoma
     Dosage: UNK
     Route: 065
  4. REMDESIVIR [Suspect]
     Active Substance: REMDESIVIR
     Indication: COVID-19
     Dosage: UNK (ADMINISTERED 4 DOSES BETWEEN DAYS 14 AND 23, 105 AND 114, 143 AND 150, AND 175 AND 181)
     Route: 065
     Dates: start: 2022
  5. SOTROVIMAB [Suspect]
     Active Substance: SOTROVIMAB
     Indication: COVID-19
     Dosage: UNK (ADMINISTERED 12 DOSES ON DAYS 0, 27, 30, 32, 34, 38, 46, 49, 101, 150, AND 185)
     Route: 065
     Dates: start: 2022
  6. PAXLOVID [Suspect]
     Active Substance: NIRMATRELVIR\RITONAVIR
     Indication: COVID-19
     Dosage: UNK (ADMINISTERED 9 COURSES BETWEEN DAYS 29 AND 43, 46 AND 50, 91 AND 104, 150 AND 154, AND 185 AND
     Route: 065
     Dates: start: 2022
  7. BARICITINIB [Suspect]
     Active Substance: BARICITINIB
     Indication: COVID-19
     Dosage: UNK
     Route: 065
     Dates: start: 2022
  8. METHYLPREDNISOLONE [Suspect]
     Active Substance: METHYLPREDNISOLONE
     Indication: COVID-19
     Dosage: UNK
     Route: 065
     Dates: start: 2022
  9. VENOGLOBULIN [Suspect]
     Active Substance: HUMAN IMMUNOGLOBULIN G
     Indication: COVID-19
     Dosage: UNK (ADMINISTERED 3 DOSES)
     Route: 065
     Dates: start: 2022
  10. KENKETU GLOVENIN-I [Suspect]
     Active Substance: HUMAN IMMUNOGLOBULIN G
     Indication: COVID-19
     Dosage: UNK (ADMINISTERED 4 DOSES)
     Route: 065
     Dates: start: 2022
  11. TOZINAMERAN [Suspect]
     Active Substance: TOZINAMERAN
     Indication: COVID-19 immunisation
     Dosage: UNK (ADMINISTERED 2 DOSES)
     Route: 065
     Dates: start: 2021

REACTIONS (7)
  - Death [Fatal]
  - Opportunistic infection [Unknown]
  - Bronchopulmonary aspergillosis [Unknown]
  - Cytomegalovirus infection [Unknown]
  - COVID-19 [Unknown]
  - Treatment failure [Unknown]
  - Off label use [Unknown]
